FAERS Safety Report 9831929 (Version 1)
Quarter: 2014Q1

REPORT INFORMATION
  Report Type: Spontaneous
  Country: US (occurrence: US)
  Receive Date: 20140121
  Receipt Date: 20140121
  Transmission Date: 20141002
  Serious: No
  Sender: FDA-Public Use
  Company Number: US-PFIZER INC-2014014508

PATIENT
  Age: 52 Year
  Sex: Male

DRUGS (1)
  1. RAPAMUNE [Suspect]
     Indication: LIVER DISORDER
     Dosage: 2 MG, UNK
     Dates: start: 20130918

REACTIONS (2)
  - Off label use [Unknown]
  - Hypertension [Unknown]
